FAERS Safety Report 6665616-0 (Version None)
Quarter: 2010Q2

REPORT INFORMATION
  Report Type: 
  Country: None (occurrence: None)
  Receive Date: 20100402
  Receipt Date: 20100326
  Transmission Date: 20101027
  Serious: Yes (Hospitalization)
  Sender: FDA-Public Use
  Company Number: JP-ELI_LILLY_AND_COMPANY-JP201003004294

PATIENT
  Sex: Female
  Weight: 52.8 kg

DRUGS (1)
  1. HUMALOG [Suspect]
     Indication: PANCREATOGENOUS DIABETES
     Dosage: UNK, 3/D, BEFORE MEAL
     Route: 058
     Dates: start: 20071121

REACTIONS (2)
  - DRUG EXPOSURE DURING PREGNANCY [None]
  - PREMATURE SEPARATION OF PLACENTA [None]
